FAERS Safety Report 20342333 (Version 1)
Quarter: 2022Q1

REPORT INFORMATION
  Report Type: Spontaneous
  Country: JP (occurrence: JP)
  Receive Date: 20220117
  Receipt Date: 20220117
  Transmission Date: 20220424
  Serious: Yes (Death, Hospitalization)
  Sender: FDA-Public Use
  Company Number: JP-ELI_LILLY_AND_COMPANY-JP202201004937

PATIENT
  Age: 70 Year
  Sex: Male

DRUGS (4)
  1. NECITUMUMAB [Suspect]
     Active Substance: NECITUMUMAB
     Indication: Squamous cell carcinoma
     Route: 065
  2. GEMCITABINE HYDROCHLORIDE [Concomitant]
     Active Substance: GEMCITABINE HYDROCHLORIDE
  3. CISPLATIN [Concomitant]
     Active Substance: CISPLATIN
  4. MINOCYCLINE HYDROCHLORIDE [Concomitant]
     Active Substance: MINOCYCLINE HYDROCHLORIDE

REACTIONS (4)
  - Malignant neoplasm progression [Fatal]
  - Thrombophlebitis migrans [Unknown]
  - Skin disorder [Unknown]
  - Hypomagnesaemia [Unknown]
